FAERS Safety Report 6889917-6 (Version None)
Quarter: 2010Q3

REPORT INFORMATION
  Report Type: 
  Country: None (occurrence: None)
  Receive Date: 20100730
  Receipt Date: 20080605
  Transmission Date: 20110219
  Serious: No
  Sender: FDA-Public Use
  Company Number: US-PFIZER INC-2008048660

PATIENT
  Sex: Female
  Weight: 77.272 kg

DRUGS (10)
  1. LIPITOR [Suspect]
     Indication: BLOOD CHOLESTEROL INCREASED
     Dates: start: 20080501
  2. ALDACTONE [Concomitant]
  3. COREG [Concomitant]
  4. DILANTIN [Concomitant]
  5. PLAVIX [Concomitant]
  6. ZESTRIL [Concomitant]
  7. FINASTERIDE [Concomitant]
  8. ALL OTHER THERAPEUTIC PRODUCTS [Concomitant]
  9. LORATADINE [Concomitant]
  10. ZOCOR [Concomitant]

REACTIONS (2)
  - BACK PAIN [None]
  - MUSCLE SPASMS [None]
